FAERS Safety Report 7552023-1 (Version None)
Quarter: 2011Q2

REPORT INFORMATION
  Report Type: 
  Country: None (occurrence: None)
  Receive Date: 20110616
  Receipt Date: 20090401
  Transmission Date: 20111010
  Serious: Yes (Other)
  Sender: FDA-Public Use
  Company Number: US-BAYER-200829477NA

PATIENT
  Sex: Male
  Weight: 91.156 kg

DRUGS (30)
  1. RENAGEL [Concomitant]
  2. SENSIPAR [Concomitant]
  3. EPO [Concomitant]
  4. PREDNISONE [Concomitant]
  5. ATIVAN [Concomitant]
  6. COZAAR [Concomitant]
  7. ASPIRIN [Concomitant]
  8. LABETALOL HCL [Concomitant]
  9. PHENERGAN HCL [Concomitant]
  10. BENADRYL [Concomitant]
  11. DARVOCET [Concomitant]
  12. OXYCODONE HCL [Concomitant]
  13. OPTIMARK [Suspect]
     Indication: NUCLEAR MAGNETIC RESONANCE IMAGING
     Dosage: UNK
     Dates: start: 20050830, end: 20050830
  14. PROHANCE [Suspect]
     Indication: NUCLEAR MAGNETIC RESONANCE IMAGING
  15. NEPHROVITE [VIT C,VIT H,B5,B12,B9,B3,B6,B2,B1 HCL] [Concomitant]
  16. OPTIMARK [Suspect]
     Indication: NUCLEAR MAGNETIC RESONANCE IMAGING BRAIN
     Dosage: UNK
     Route: 042
     Dates: start: 20051222, end: 20051222
  17. OPTIMARK [Suspect]
     Dosage: 20 ML, ONCE
     Dates: start: 20060525, end: 20060525
  18. MINOXIDIL [Concomitant]
  19. MAGNEVIST [Suspect]
     Indication: NUCLEAR MAGNETIC RESONANCE IMAGING BRAIN
     Dosage: 20 ML, ONCE
     Dates: start: 20070502, end: 20070502
  20. OMNISCAN [Suspect]
     Indication: NUCLEAR MAGNETIC RESONANCE IMAGING
  21. CLONIDINE HYDROCHLORIDE [Concomitant]
  22. LORAZEPAM [Concomitant]
  23. ACTONEL [Concomitant]
  24. CITALOPRAM HYDROBROMIDE [Concomitant]
  25. NORVASC [Concomitant]
  26. MULTIHANCE [Suspect]
     Indication: NUCLEAR MAGNETIC RESONANCE IMAGING
  27. HEPARIN [Concomitant]
  28. FOSRENOL [Concomitant]
  29. PHOSLO [Concomitant]
  30. PROTONIX [Concomitant]

REACTIONS (26)
  - OEDEMA PERIPHERAL [None]
  - JOINT RANGE OF MOTION DECREASED [None]
  - FIBROSIS [None]
  - PAIN [None]
  - SKIN TIGHTNESS [None]
  - MUSCULAR WEAKNESS [None]
  - ARTHRALGIA [None]
  - SCAR [None]
  - NEPHROGENIC SYSTEMIC FIBROSIS [None]
  - INJURY [None]
  - EMOTIONAL DISTRESS [None]
  - JOINT STIFFNESS [None]
  - SKIN INDURATION [None]
  - SKIN EXFOLIATION [None]
  - MYOCARDIAL FIBROSIS [None]
  - SKIN FISSURES [None]
  - ANXIETY [None]
  - JOINT CONTRACTURE [None]
  - PARAESTHESIA [None]
  - SKIN HYPERTROPHY [None]
  - SKIN HYPERPIGMENTATION [None]
  - SKIN FIBROSIS [None]
  - GAIT DISTURBANCE [None]
  - SKIN SWELLING [None]
  - SKIN LESION [None]
  - BURNING SENSATION [None]
